FAERS Safety Report 7313707-3 (Version None)
Quarter: 2011Q1

REPORT INFORMATION
  Report Type: 
  Country: None (occurrence: None)
  Receive Date: 20110215
  Receipt Date: 20110215
  Transmission Date: 20110831
  Serious: Yes (Hospitalization)
  Sender: FDA-Public Use
  Company Number: None

PATIENT
  Sex: Female
  Weight: 59.8748 kg

DRUGS (2)
  1. AZACITIDINE [Suspect]
     Indication: ACUTE MYELOID LEUKAEMIA
     Dosage: 75 MG/M2 D1-D5
     Dates: start: 20110207, end: 20110211
  2. LENALIDOMIDE [Suspect]
     Indication: ACUTE MYELOID LEUKAEMIA
     Dosage: 10 MG PO DAILY D1-28
     Route: 048
     Dates: start: 20110207

REACTIONS (2)
  - STAPHYLOCOCCAL INFECTION [None]
  - BLOOD CULTURE POSITIVE [None]
